FAERS Safety Report 8543697-7 (Version None)
Quarter: 2012Q3

REPORT INFORMATION
  Report Type: 
  Country: None (occurrence: None)
  Receive Date: 20120727
  Receipt Date: 20120719
  Transmission Date: 20120928
  Serious: Yes (Other)
  Sender: FDA-Public Use
  Company Number: PL-JNJFOC-20120711309

PATIENT

DRUGS (4)
  1. REMICADE [Suspect]
     Indication: CROHN'S DISEASE
     Dosage: 0, 2, 6 WEEKS, CONTINUATION: EVERY 4 OR 8 WEEKS
     Route: 042
     Dates: start: 20070101
  2. AZATHIOPRINE [Suspect]
     Indication: CROHN'S DISEASE
     Route: 065
  3. METHOTREXATE [Suspect]
     Indication: CROHN'S DISEASE
     Route: 065
  4. PREDNISONE [Suspect]
     Indication: CROHN'S DISEASE
     Route: 048

REACTIONS (1)
  - HERPES ZOSTER [None]
